FAERS Safety Report 9454111 (Version 1)
Quarter: 2013Q3

REPORT INFORMATION
  Report Type: Spontaneous
  Country: US (occurrence: None)
  Receive Date: 20130809
  Receipt Date: 20130809
  Transmission Date: 20140515
  Serious: Yes (Hospitalization)
  Sender: FDA-Public Use
  Company Number: None

PATIENT
  Age: 43 Year
  Sex: Male

DRUGS (1)
  1. TASIGNA 150MG NOVARTIS [Suspect]
     Indication: ACUTE MYELOID LEUKAEMIA
     Dosage: 150MG QD PO
     Route: 048
     Dates: start: 20120120, end: 20130726

REACTIONS (1)
  - Pneumonia [None]
